FAERS Safety Report 17278693 (Version 1)
Quarter: 2020Q1

REPORT INFORMATION
  Report Type: Spontaneous
  Country: AT (occurrence: AT)
  Receive Date: 20200116
  Receipt Date: 20200116
  Transmission Date: 20200409
  Serious: Yes (Other)
  Sender: FDA-Public Use
  Company Number: AT-BAYER-2020-007084

PATIENT
  Age: 67 Year
  Sex: Female

DRUGS (1)
  1. ULTRAVIST [Suspect]
     Active Substance: IOPROMIDE
     Route: 042
     Dates: start: 20190626, end: 20190626

REACTIONS (6)
  - Erythema [Unknown]
  - Sensation of foreign body [Unknown]
  - Drug intolerance [Unknown]
  - Nausea [Unknown]
  - Dizziness [Unknown]
  - Pruritus [Unknown]

NARRATIVE: CASE EVENT DATE: 20190626
